FAERS Safety Report 6083390-6 (Version None)
Quarter: 2009Q1

REPORT INFORMATION
  Report Type: 
  Country: None (occurrence: None)
  Receive Date: 20090219
  Receipt Date: 20090218
  Transmission Date: 20090719
  Serious: Yes (Life-Threatening)
  Sender: FDA-Public Use
  Company Number: JP-ASTRAZENECA-2009AP00658

PATIENT
  Age: 46 Year
  Sex: Female
  Weight: 41 kg

DRUGS (7)
  1. NOLVADEX [Suspect]
     Indication: BREAST CANCER
     Route: 048
  2. LEUPROLIDE ACETATE [Concomitant]
     Indication: BREAST CANCER
     Route: 058
     Dates: start: 20061130
  3. ZOMETA [Concomitant]
     Indication: METASTASES TO BONE
     Route: 042
     Dates: start: 20070823
  4. ADRIACIN [Concomitant]
     Indication: METASTASES TO BONE
     Dosage: ADMINISTERED FOUR TIMES.
     Route: 042
     Dates: start: 20070614, end: 20070823
  5. ADRIACIN [Concomitant]
     Dosage: ADMINISTERED FOUR TIMES.
     Route: 042
     Dates: start: 20080327, end: 20080627
  6. ENDOXAN [Concomitant]
     Indication: METASTASES TO BONE
     Dosage: ADMINISTERED FOUR TIMES.
     Route: 042
     Dates: start: 20070614, end: 20070823
  7. ENDOXAN [Concomitant]
     Dosage: ADMINISTERED FOUR TIMES.
     Route: 042
     Dates: start: 20080327, end: 20080627

REACTIONS (1)
  - CEREBRAL INFARCTION [None]
